FAERS Safety Report 6145142-8 (Version None)
Quarter: 2009Q2

REPORT INFORMATION
  Report Type: 
  Country: None (occurrence: None)
  Receive Date: 20090402
  Receipt Date: 20090402
  Transmission Date: 20091009
  Serious: Yes (Hospitalization)
  Sender: FDA-Public Use
  Company Number: None

PATIENT
  Sex: Male
  Weight: 81.4 kg

DRUGS (1)
  1. CAMPATH [Suspect]
     Dosage: 313 MG

REACTIONS (3)
  - LOBAR PNEUMONIA [None]
  - LYMPHOPENIA [None]
  - NEUTROPENIA [None]
